FAERS Safety Report 22749040 (Version 3)
Quarter: 2024Q1

REPORT INFORMATION
  Report Type: Spontaneous
  Country: US (occurrence: US)
  Receive Date: 20230725
  Receipt Date: 20240124
  Transmission Date: 20240410
  Serious: No
  Sender: FDA-Public Use
  Company Number: US-BRISTOL-MYERS SQUIBB COMPANY-2023-104247

PATIENT
  Age: 58 Year
  Sex: Female

DRUGS (1)
  1. ORENCIA [Suspect]
     Active Substance: ABATACEPT
     Indication: Rheumatoid arthritis
     Route: 058
     Dates: start: 202307

REACTIONS (11)
  - Sinus congestion [Unknown]
  - Headache [Unknown]
  - Back pain [Unknown]
  - Nervous system disorder [Unknown]
  - Decreased appetite [Unknown]
  - Skin irritation [Unknown]
  - Hyperhidrosis [Unknown]
  - Paraesthesia [Unknown]
  - Inflammation [Unknown]
  - Pain [Unknown]
  - General physical health deterioration [Unknown]
